FAERS Safety Report 18860862 (Version 1)
Quarter: 2021Q1

REPORT INFORMATION
  Report Type: Report from Study
  Country: IN (occurrence: IN)
  Receive Date: 20210208
  Receipt Date: 20210208
  Transmission Date: 20210420
  Serious: Yes (Other)
  Sender: FDA-Public Use
  Company Number: NVSC2021IN023840

PATIENT
  Sex: Male

DRUGS (3)
  1. SCAPHO [Suspect]
     Active Substance: SECUKINUMAB
     Dosage: 150 MG, QW
     Route: 058
     Dates: start: 20210102
  2. SCAPHO [Suspect]
     Active Substance: SECUKINUMAB
     Indication: SPONDYLOARTHROPATHY
     Dosage: 150 MG
     Route: 058
  3. SCAPHO [Suspect]
     Active Substance: SECUKINUMAB
     Dosage: 150 MG
     Route: 058
     Dates: start: 20210129

REACTIONS (7)
  - Demyelination [Unknown]
  - Vasculitis [Unknown]
  - Drug ineffective for unapproved indication [Unknown]
  - Pain in jaw [Unknown]
  - Neck pain [Unknown]
  - Back pain [Not Recovered/Not Resolved]
  - Arthralgia [Unknown]
